FAERS Safety Report 8759112 (Version 2)
Quarter: 2012Q4

REPORT INFORMATION
  Report Type: 
  Country: US (occurrence: US)
  Receive Date: 20120829
  Receipt Date: 20120829
  Transmission Date: 20130627
  Serious: Yes (Other)
  Sender: FDA-Public Use
  Company Number: PHEH2012US002701

PATIENT
  Sex: Female
  Weight: 42.6 kg

DRUGS (8)
  1. GILENYA [Suspect]
     Indication: RELAPSING-REMITTING MULTIPLE SCLEROSIS
     Dosage: 0.5 mg, QD
     Route: 048
     Dates: start: 201112, end: 20120303
  2. GILENYA [Suspect]
     Dosage: 0.5 mg, QD
     Route: 048
     Dates: start: 20120510, end: 20120716
  3. FAMPRIDINE [Suspect]
     Dosage: 10 mg, Q12H
     Route: 048
     Dates: start: 201008
  4. TYSABRI [Suspect]
     Dosage: UNK
     Dates: start: 201207, end: 201207
  5. ZOLOFT [Concomitant]
     Dosage: 100 mg, QD
  6. PRAMIPEXOLE [Concomitant]
     Dosage: 0.5 mg, BID
  7. AMANTADINE [Concomitant]
     Dosage: 100 mg, QD
  8. MULTIVIT [Concomitant]

REACTIONS (12)
  - Hallucination [Recovered/Resolved]
  - Balance disorder [Recovered/Resolved]
  - Stress [Unknown]
  - Fall [Recovered/Resolved]
  - Musculoskeletal stiffness [Not Recovered/Not Resolved]
  - Palpitations [Unknown]
  - Gait disturbance [Recovering/Resolving]
  - Pain in extremity [Unknown]
  - Oedema peripheral [Unknown]
  - Headache [Unknown]
  - Asthenia [Not Recovered/Not Resolved]
  - Drug ineffective [Unknown]
